FAERS Safety Report 22270620 (Version 1)
Quarter: 2023Q2

REPORT INFORMATION
  Report Type: Spontaneous
  Country: US (occurrence: US)
  Receive Date: 20230501
  Receipt Date: 20230501
  Transmission Date: 20230722
  Serious: Yes (Other)
  Sender: FDA-Public Use
  Company Number: US-PARATEK PHARMACEUTICALS, INC.-2023PTK00161

PATIENT
  Age: 71 Year
  Sex: Female
  Weight: 77.098 kg

DRUGS (2)
  1. NUZYRA [Suspect]
     Active Substance: OMADACYCLINE
     Indication: Cellulitis
     Dosage: 450 MG, 1X/DAY
     Route: 048
     Dates: start: 20230419, end: 20230420
  2. NUZYRA [Suspect]
     Active Substance: OMADACYCLINE
     Indication: Ulcer
     Dosage: 300 MG, 1X/DAY
     Route: 048
     Dates: start: 20230421, end: 20230421

REACTIONS (3)
  - Dementia [Unknown]
  - Dizziness [Unknown]
  - Vision blurred [Unknown]

NARRATIVE: CASE EVENT DATE: 20230421
